FAERS Safety Report 5441362-6 (Version None)
Quarter: 2007Q3

REPORT INFORMATION
  Report Type: 
  Country: None (occurrence: None)
  Receive Date: 20070903
  Receipt Date: 20070829
  Transmission Date: 20080115
  Serious: Yes (Other)
  Sender: FDA-Public Use
  Company Number: PHNU2007DE02992

PATIENT
  Age: 34 Year
  Sex: Female

DRUGS (5)
  1. TRILEPTAL [Suspect]
     Indication: SCHIZOAFFECTIVE DISORDER
     Dosage: 900 MG/D
     Route: 048
     Dates: start: 20070301, end: 20070701
  2. TRILEPTAL [Suspect]
     Dosage: 300 MG/D
     Route: 048
     Dates: start: 20070701, end: 20070827
  3. TRILEPTAL [Suspect]
     Dosage: 450 MG/D
     Route: 048
     Dates: start: 20070828
  4. LITHIUM CARBONATE [Concomitant]
  5. SOLIAN [Concomitant]

REACTIONS (7)
  - ABDOMINAL DISCOMFORT [None]
  - ABDOMINAL TENDERNESS [None]
  - BLOOD AMYLASE INCREASED [None]
  - LIPASE INCREASED [None]
  - NAUSEA [None]
  - PANCREATITIS [None]
  - VOMITING [None]
